FAERS Safety Report 9996513 (Version 1)
Quarter: 2014Q1

REPORT INFORMATION
  Report Type: Spontaneous
  Country: CN (occurrence: CN)
  Receive Date: 20140311
  Receipt Date: 20140311
  Transmission Date: 20141002
  Serious: Yes (Other)
  Sender: FDA-Public Use
  Company Number: CN-PFIZER INC-2014065492

PATIENT
  Age: 43 Year
  Sex: Male
  Weight: 70 kg

DRUGS (1)
  1. VIAGRA [Suspect]
     Indication: ERECTILE DYSFUNCTION
     Dosage: MORE THAN 30 TABLETS WITHIN THE PAST MORE THAN TWO YEARS, 1/3 TABLET PER TIME BY SPLITTING
     Route: 048

REACTIONS (4)
  - Liver injury [Unknown]
  - Hepatic cyst [Unknown]
  - Hepatic neoplasm [Unknown]
  - Ultrasound liver abnormal [Unknown]
